FAERS Safety Report 4727470-3 (Version None)
Quarter: 2005Q3

REPORT INFORMATION
  Report Type: 
  Country: None (occurrence: None)
  Receive Date: 20050727
  Receipt Date: 20050727
  Transmission Date: 20060218
  Serious: No
  Sender: FDA-Public Use
  Company Number: None

PATIENT
  Sex: Female
  Weight: 65.7716 kg

DRUGS (4)
  1. SYNTHROID [Suspect]
     Indication: HYPOTHYROIDISM
     Dosage: ONE DAILY
     Dates: start: 19960101
  2. MULTIPLE VITAMINS [SHACKLEY] [Suspect]
  3. ESTRACE [Concomitant]
  4. NEXIUM [Concomitant]

REACTIONS (7)
  - CHOKING [None]
  - COUGH [None]
  - FEELING ABNORMAL [None]
  - INSOMNIA [None]
  - IRRITABILITY [None]
  - THROAT TIGHTNESS [None]
  - TREMOR [None]
